FAERS Safety Report 16371390 (Version 1)
Quarter: 2019Q2

REPORT INFORMATION
  Report Type: Spontaneous
  Country: JP (occurrence: JP)
  Receive Date: 20190530
  Receipt Date: 20190530
  Transmission Date: 20190711
  Serious: Yes (Death, Hospitalization, Other)
  Sender: FDA-Public Use
  Company Number: JP-AMGEN-JPNSP2019085851

PATIENT
  Age: 86 Year
  Sex: Male

DRUGS (5)
  1. ISONIAZID. [Concomitant]
     Active Substance: ISONIAZID
     Indication: PERITONEAL TUBERCULOSIS
     Dosage: 300 MILLIGRAM, QD
     Route: 048
  2. RIFAMPICIN [Concomitant]
     Active Substance: RIFAMPIN
     Indication: PERITONEAL TUBERCULOSIS
     Dosage: 450 MILLIGRAM, QD
     Route: 048
  3. RANMARK [Suspect]
     Active Substance: DENOSUMAB
     Indication: HYPERCALCAEMIA
     Dosage: UNK
     Route: 065
  4. PYRIDOXAL PHOSPHATE [Concomitant]
     Active Substance: PYRIDOXAL PHOSPHATE
     Dosage: UNK
     Route: 065
  5. PRECIPITATED CALCIUM CARBONATE [Concomitant]
     Active Substance: CALCIUM CARBONATE
     Dosage: UNK
     Route: 065

REACTIONS (8)
  - Body temperature decreased [Unknown]
  - White blood cell count decreased [Unknown]
  - Platelet count decreased [Unknown]
  - Off label use [Unknown]
  - Respiratory failure [Fatal]
  - Muscular weakness [Unknown]
  - Renal impairment [Unknown]
  - Dysarthria [Unknown]
